FAERS Safety Report 15603797 (Version 3)
Quarter: 2019Q1

REPORT INFORMATION
  Report Type: Spontaneous
  Country: CA (occurrence: CA)
  Receive Date: 20181109
  Receipt Date: 20190327
  Transmission Date: 20190417
  Serious: Yes (Death, Other)
  Sender: FDA-Public Use
  Company Number: CA-BRACCO-2018CA05637

PATIENT
  Age: 68 Year
  Sex: Male

DRUGS (1)
  1. BARIUM SULPHATE [Suspect]
     Active Substance: BARIUM SULFATE
     Indication: DIAGNOSTIC PROCEDURE
     Dosage: UNK, SINGLE
     Route: 048

REACTIONS (1)
  - Renal failure [Fatal]
